FAERS Safety Report 7218029-7 (Version None)
Quarter: 2011Q1

REPORT INFORMATION
  Report Type: 
  Country: None (occurrence: None)
  Receive Date: 20110110
  Receipt Date: 20110105
  Transmission Date: 20110831
  Serious: Yes (Other)
  Sender: FDA-Public Use
  Company Number: PL-WATSON-2010-16524

PATIENT
  Age: 35 Year
  Sex: Female

DRUGS (6)
  1. TELZIR                             /01644801/ [Suspect]
     Indication: HIV INFECTION
     Dosage: UNK
  2. LAMIVUDINE [Suspect]
     Indication: HIV INFECTION
     Dosage: UNK
  3. PREDNISONE [Suspect]
     Indication: RETINITIS
     Dosage: 10 MG, DAILY
  4. PREDNISONE [Suspect]
     Indication: VITRITIS
     Dosage: 30 MG, DAILY
  5. VIREAD                             /01490001/ [Suspect]
     Indication: HIV INFECTION
     Dosage: UNK
  6. STOCRIN [Suspect]
     Indication: HIV INFECTION
     Dosage: UNK

REACTIONS (4)
  - RETINITIS [None]
  - IMMUNE RECONSTITUTION SYNDROME [None]
  - VITRITIS [None]
  - STEROID WITHDRAWAL SYNDROME [None]
